FAERS Safety Report 7917897-0 (Version None)
Quarter: 2011Q4

REPORT INFORMATION
  Report Type: 
  Country: None (occurrence: None)
  Receive Date: 20111114
  Receipt Date: 20111031
  Transmission Date: 20120403
  Serious: Yes (Hospitalization)
  Sender: FDA-Public Use
  Company Number: 2011SP044396

PATIENT
  Age: 72 Year
  Sex: Male
  Weight: 70.7 kg

DRUGS (7)
  1. PANTOPRAZOLE SODIUM [Concomitant]
  2. OXCARBAZAEPIN [Concomitant]
  3. TEMOZOLOMIDE [Suspect]
  4. RAMIPRIL [Concomitant]
  5. TEMOZOLOMIDE [Suspect]
  6. FORTECORTIN [Concomitant]
  7. TEMOZOLOMIDE [Suspect]
     Indication: PRODUCT USED FOR UNKNOWN INDICATION
     Dosage: 150 MG
     Dates: start: 20110830, end: 20110919

REACTIONS (3)
  - RENAL FAILURE [None]
  - CONVULSION [None]
  - URINARY TRACT INFECTION [None]
